FAERS Safety Report 16157067 (Version 3)
Quarter: 2019Q2

REPORT INFORMATION
  Report Type: Spontaneous
  Country: DE (occurrence: DE)
  Receive Date: 20190404
  Receipt Date: 20190515
  Transmission Date: 20190711
  Serious: Yes (Other)
  Sender: FDA-Public Use
  Company Number: DE-TEVA-2019-DE-1031625

PATIENT
  Age: 75 Year
  Sex: Male

DRUGS (4)
  1. TAMSULOSIN 1A PHARMA [Concomitant]
     Route: 065
  2. ROSUVASTATIN-RATIOPHARM 5 MG FILMTABLETTEN [Suspect]
     Active Substance: ROSUVASTATIN CALCIUM
     Dosage: 5 MILLIGRAM DAILY;
     Route: 048
     Dates: start: 201811, end: 20190326
  3. NEBILET [Concomitant]
     Active Substance: NEBIVOLOL
     Route: 065
  4. ASS 100 [Concomitant]
     Active Substance: ASPIRIN
     Route: 065

REACTIONS (3)
  - Lipase increased [Recovered/Resolved]
  - Amylase increased [Recovered/Resolved]
  - Pancreatic disorder [Recovered/Resolved]
